FAERS Safety Report 24064877 (Version 1)
Quarter: 2024Q3

REPORT INFORMATION
  Report Type: Spontaneous
  Country: US (occurrence: US)
  Receive Date: 20240709
  Receipt Date: 20240709
  Transmission Date: 20241017
  Serious: No
  Sender: TEVA
  Company Number: US-TEVA-VS-3212972

PATIENT
  Age: 49 Year
  Sex: Female

DRUGS (1)
  1. LENALIDOMIDE [Suspect]
     Active Substance: LENALIDOMIDE
     Indication: Plasma cell myeloma
     Dosage: 5 MILLIGRAM(S)21 EVERY 21 DAY?5 MILLIGRAM(S) 28 EVERY 28 DAY
     Route: 065

REACTIONS (17)
  - Human chorionic gonadotropin increased [Unknown]
  - Blood chloride increased [Unknown]
  - Blood urea increased [Unknown]
  - Blood creatinine increased [Unknown]
  - Neutrophil percentage decreased [Unknown]
  - Lymphocyte percentage increased [Unknown]
  - Eosinophil percentage increased [Unknown]
  - Neutrophil count decreased [Unknown]
  - Blood calcium decreased [Unknown]
  - Glomerular filtration rate decreased [Unknown]
  - White blood cell count decreased [Unknown]
  - Red blood cell count decreased [Unknown]
  - Haemoglobin decreased [Unknown]
  - Haematocrit decreased [Unknown]
  - Mean cell volume increased [Unknown]
  - Red cell distribution width increased [Unknown]
  - Platelet count decreased [Unknown]
